FAERS Safety Report 15435885 (Version 1)
Quarter: 2018Q4

REPORT INFORMATION
  Report Type: Spontaneous
  Country: US (occurrence: US)
  Receive Date: 20180927
  Receipt Date: 20180927
  Transmission Date: 20190204
  Serious: Yes (Other)
  Sender: FDA-Public Use
  Company Number: US-JNJFOC-20180922039

PATIENT
  Age: 21 Year
  Sex: Female
  Weight: 49.9 kg

DRUGS (1)
  1. NEUTROGENA TGEL THERAPEUTIC [Suspect]
     Active Substance: COAL TAR
     Indication: PERSONAL HYGIENE
     Dosage: HAIR FULL 1X DAILY
     Route: 061
     Dates: start: 20180916, end: 20180917

REACTIONS (2)
  - Hypersensitivity [Not Recovered/Not Resolved]
  - Swelling [Not Recovered/Not Resolved]

NARRATIVE: CASE EVENT DATE: 20180917
